FAERS Safety Report 15320125 (Version 2)
Quarter: 2018Q3

REPORT INFORMATION
  Report Type: Spontaneous
  Country: US (occurrence: US)
  Receive Date: 20180827
  Receipt Date: 20180829
  Transmission Date: 20181010
  Serious: No
  Sender: FDA-Public Use
  Company Number: US-PFIZER INC-2018337573

PATIENT
  Age: 9 Year
  Sex: Male
  Weight: 32.65 kg

DRUGS (2)
  1. QUILLIVANT XR [Suspect]
     Active Substance: METHYLPHENIDATE HYDROCHLORIDE
     Dosage: UNK, 1X/DAY [ONCE IN THE MORNING]
     Dates: start: 20180819
  2. QUILLIVANT XR [Suspect]
     Active Substance: METHYLPHENIDATE HYDROCHLORIDE
     Indication: ATTENTION DEFICIT/HYPERACTIVITY DISORDER
     Dosage: UNK, 1X/DAY [ONCE IN THE MORNING]
     Dates: start: 20180817, end: 20180817

REACTIONS (2)
  - Drug dispensing error [Unknown]
  - Drug ineffective [Unknown]

NARRATIVE: CASE EVENT DATE: 201808
